FAERS Safety Report 7137627-2 (Version None)
Quarter: 2010Q4

REPORT INFORMATION
  Report Type: 
  Country: None (occurrence: None)
  Receive Date: 20101102
  Receipt Date: 20100617
  Transmission Date: 20110411
  Serious: Yes (Hospitalization)
  Sender: FDA-Public Use
  Company Number: 2010BH016237

PATIENT
  Age: 78 Year
  Sex: Female

DRUGS (11)
  1. PHENERGAN HCL [Suspect]
     Indication: NAUSEA
     Dosage: 12.5 MG; ONCE; IV, ; IV
     Route: 042
     Dates: start: 20100501, end: 20100501
  2. PHENERGAN HCL [Suspect]
     Indication: VOMITING
     Dosage: 12.5 MG; ONCE; IV, ; IV
     Route: 042
     Dates: start: 20100501, end: 20100501
  3. PHENERGAN HCL [Suspect]
     Indication: NAUSEA
     Dosage: 12.5 MG; ONCE; IV, ; IV
     Route: 042
     Dates: start: 20100616, end: 20100616
  4. PHENERGAN HCL [Suspect]
     Indication: VOMITING
     Dosage: 12.5 MG; ONCE; IV, ; IV
     Route: 042
     Dates: start: 20100616, end: 20100616
  5. PHENERGAN HCL [Suspect]
     Indication: NAUSEA
     Dosage: 12.5 MG; ONCE; IV, ; IV
     Route: 042
     Dates: start: 20100617, end: 20100617
  6. PHENERGAN HCL [Suspect]
     Indication: VOMITING
     Dosage: 12.5 MG; ONCE; IV, ; IV
     Route: 042
     Dates: start: 20100617, end: 20100617
  7. ZOLOFT [Concomitant]
  8. METOPROLOL TARTRATE [Concomitant]
  9. ACIPHEX [Concomitant]
  10. COMPAZINE [Concomitant]
  11. SINEMET [Concomitant]

REACTIONS (2)
  - EXTRAVASATION [None]
  - RASH [None]
